FAERS Safety Report 4497779-X (Version None)
Quarter: 2004Q4

REPORT INFORMATION
  Report Type: 
  Country: None (occurrence: None)
  Receive Date: 20041104
  Receipt Date: 20041027
  Transmission Date: 20050328
  Serious: Yes (Life-Threatening)
  Sender: FDA-Public Use
  Company Number: 2004194632JP

PATIENT
  Age: 18 Year
  Sex: Male
  Weight: 52 kg

DRUGS (27)
  1. CAMPTOSAR [Suspect]
     Indication: EWING'S SARCOMA
     Dosage: SEE IMAGE
     Route: 041
     Dates: start: 20030129, end: 20030202
  2. CAMPTOSAR [Suspect]
     Indication: EWING'S SARCOMA
     Dosage: SEE IMAGE
     Route: 041
     Dates: start: 20030205, end: 20030209
  3. CAMPTOSAR [Suspect]
     Indication: EWING'S SARCOMA
     Dosage: SEE IMAGE
     Route: 041
     Dates: start: 20030219, end: 20030223
  4. CAMPTOSAR [Suspect]
     Indication: EWING'S SARCOMA
     Dosage: SEE IMAGE
     Route: 041
     Dates: start: 20030226, end: 20030302
  5. CAMPTOSAR [Suspect]
     Indication: EWING'S SARCOMA
     Dosage: SEE IMAGE
     Route: 041
     Dates: start: 20030313, end: 20030317
  6. CAMPTOSAR [Suspect]
     Indication: EWING'S SARCOMA
     Dosage: SEE IMAGE
     Route: 041
     Dates: start: 20030320, end: 20030324
  7. CAMPTOSAR [Suspect]
     Indication: EWING'S SARCOMA
     Dosage: SEE IMAGE
     Route: 041
     Dates: start: 20030402, end: 20030406
  8. CAMPTOSAR [Suspect]
     Indication: EWING'S SARCOMA
     Dosage: SEE IMAGE
     Route: 041
     Dates: start: 20030409, end: 20030410
  9. VINCRISTINE [Suspect]
     Indication: EWING'S SARCOMA
     Dosage: 2 MG, IV
     Route: 042
     Dates: start: 20030402, end: 20030409
  10. CORTICOSTEROIDS [Concomitant]
  11. GASTER [Concomitant]
  12. XYLOCAINE [Concomitant]
  13. ROPION (FLURBIPROFEN AXETIL) [Concomitant]
  14. LEPETAN (BUPRENORPHINE HYDROCHLORIDE) [Concomitant]
  15. PN TWIN (CARBOHYDRATES NOS) [Concomitant]
  16. SOHVITA (VITAMINS NOS) [Concomitant]
  17. MINERALS NOS [Concomitant]
  18. INTRAFAT [Concomitant]
  19. SULPERAZON (SULBACTAM SODIUM, CEFOPERAZONE SODIUM) [Concomitant]
  20. GLYCEOL [Concomitant]
  21. SOLU-MEDROL [Concomitant]
  22. BISPHONAL [Concomitant]
  23. CEFPIRAMIDE SODIUM [Concomitant]
  24. DIFLUCAN [Concomitant]
  25. BAKTAR [Concomitant]
  26. FLORID [Concomitant]
  27. TEGRETOL [Concomitant]

REACTIONS (14)
  - ANAEMIA [None]
  - ASCITES [None]
  - CHEST WALL PAIN [None]
  - HEPATOMEGALY [None]
  - HYPERBILIRUBINAEMIA [None]
  - HYPERCALCAEMIA [None]
  - LEUKOPENIA [None]
  - METASTASES TO KIDNEY [None]
  - NEUTROPENIA [None]
  - PYREXIA [None]
  - TENDERNESS [None]
  - THERAPY NON-RESPONDER [None]
  - THROMBOCYTOPENIA [None]
  - VENOOCCLUSIVE DISEASE [None]
